FAERS Safety Report 8996782 (Version 4)
Quarter: 2013Q2

REPORT INFORMATION
  Report Type: Spontaneous
  Country: US (occurrence: US)
  Receive Date: 20130104
  Receipt Date: 20130513
  Transmission Date: 20140414
  Serious: Yes (Hospitalization, Other)
  Sender: FDA-Public Use
  Company Number: US-009507513-1202USA04371

PATIENT
  Sex: Female
  Weight: 68.27 kg

DRUGS (3)
  1. FOSAMAX [Suspect]
     Dosage: 70 MG, QW
     Route: 048
     Dates: start: 2000, end: 201101
  2. FOSAMAX [Suspect]
     Dosage: 10 MG, QD
     Route: 048
     Dates: start: 19991215
  3. ALENDRONATE SODIUM [Suspect]
     Indication: PROPHYLAXIS
     Dosage: 70 MG, QW
     Route: 048
     Dates: start: 2000, end: 2011

REACTIONS (37)
  - Intramedullary rod insertion [Unknown]
  - Small cell lung cancer [Unknown]
  - Breast cancer [Unknown]
  - Knee arthroplasty [Unknown]
  - Femur fracture [Unknown]
  - Low turnover osteopathy [Unknown]
  - Hypertension [Unknown]
  - Anxiety [Unknown]
  - Nephropathy [Unknown]
  - Lung operation [Unknown]
  - Renal artery stent placement [Unknown]
  - Renal artery stent placement [Unknown]
  - Stent placement [Unknown]
  - Stent placement [Unknown]
  - Arthritis [Unknown]
  - Surgery [Unknown]
  - Spinal osteoarthritis [Unknown]
  - Urinary tract infection [Unknown]
  - Peripheral vascular disorder [Unknown]
  - Bursitis [Unknown]
  - Sacroiliitis [Unknown]
  - Scoliosis [Unknown]
  - Osteopenia [Unknown]
  - Arterial occlusive disease [Unknown]
  - Arterial stent insertion [Unknown]
  - Pain [Not Recovered/Not Resolved]
  - Anaemia postoperative [Recovering/Resolving]
  - Coronary artery disease [Unknown]
  - Peripheral arterial occlusive disease [Unknown]
  - Chronic obstructive pulmonary disease [Not Recovered/Not Resolved]
  - Urinary tract infection [Unknown]
  - Atrial fibrillation [Unknown]
  - Arthralgia [Unknown]
  - Vomiting [Unknown]
  - Nausea [Unknown]
  - Gastrooesophageal reflux disease [Unknown]
  - Gastrooesophageal reflux disease [Unknown]
